FAERS Safety Report 6525597-7 (Version None)
Quarter: 2010Q1

REPORT INFORMATION
  Report Type: 
  Country: None (occurrence: None)
  Receive Date: 20100104
  Receipt Date: 20091223
  Transmission Date: 20100710
  Serious: Yes (Other)
  Sender: FDA-Public Use
  Company Number: US-PFIZER INC-2009297016

PATIENT
  Sex: Male
  Weight: 99.79 kg

DRUGS (4)
  1. CHANTIX [Suspect]
     Indication: SMOKING CESSATION THERAPY
     Dosage: 1 MG, 2X/DAY
     Dates: end: 20090101
  2. CHANTIX [Suspect]
     Dosage: 0.5 MG, 1X/DAY
     Route: 048
     Dates: start: 20091106
  3. PROTONIX [Concomitant]
  4. ONE-A-DAY [Concomitant]

REACTIONS (3)
  - MAJOR DEPRESSION [None]
  - PANIC REACTION [None]
  - SUICIDAL IDEATION [None]
